FAERS Safety Report 7226323-9 (Version None)
Quarter: 2011Q1

REPORT INFORMATION
  Report Type: 
  Country: None (occurrence: None)
  Receive Date: 20110114
  Receipt Date: 20110107
  Transmission Date: 20110831
  Serious: Yes (Other)
  Sender: FDA-Public Use
  Company Number: PHHY2010US74248

PATIENT
  Sex: Female

DRUGS (11)
  1. DOXYCYCLINE [Concomitant]
     Dosage: UNK
  2. LOVAZA [Concomitant]
     Dosage: UNK
  3. MIRALAX [Concomitant]
     Dosage: UNK
  4. BONIVA [Concomitant]
     Dosage: UNK
  5. ENABLEX [Concomitant]
     Dosage: UNK
  6. EXTAVIA [Suspect]
     Indication: MULTIPLE SCLEROSIS
     Dosage: 0.25 MG, QOD
     Route: 058
     Dates: start: 20101025
  7. LEXAPRO [Concomitant]
     Dosage: UNK
  8. VITAMIN B-12 [Concomitant]
     Dosage: UNK
  9. VITAMIN D [Concomitant]
     Dosage: UNK
  10. SENOKOT [Concomitant]
     Dosage: UNK
  11. LACTULOSE [Concomitant]
     Dosage: UNK

REACTIONS (22)
  - MUSCULAR WEAKNESS [None]
  - INFLUENZA LIKE ILLNESS [None]
  - DRUG DOSE OMISSION [None]
  - ASTHENIA [None]
  - NASOPHARYNGITIS [None]
  - INJECTION SITE IRRITATION [None]
  - VISION BLURRED [None]
  - MUSCULOSKELETAL STIFFNESS [None]
  - CHILLS [None]
  - PAIN [None]
  - MOTOR DYSFUNCTION [None]
  - HEADACHE [None]
  - FATIGUE [None]
  - HYPOAESTHESIA [None]
  - URINARY INCONTINENCE [None]
  - DIPLOPIA [None]
  - OROPHARYNGEAL PAIN [None]
  - DEPRESSION [None]
  - STRESS [None]
  - DIZZINESS [None]
  - MALAISE [None]
  - INJECTION SITE ERYTHEMA [None]
